FAERS Safety Report 8117673-2 (Version None)
Quarter: 2012Q1

REPORT INFORMATION
  Report Type: 
  Country: None (occurrence: None)
  Receive Date: 20120203
  Receipt Date: 20120203
  Transmission Date: 20120608
  Serious: Yes (Other)
  Sender: FDA-Public Use
  Company Number: None

PATIENT
  Sex: Female
  Weight: 63.6 kg

DRUGS (2)
  1. TYSABRI [Suspect]
     Indication: MULTIPLE SCLEROSIS
     Dosage: 300 MG EVERY MONTH INTRAVENOUS DRIP
     Route: 041
     Dates: start: 20111215
  2. TYSABRI [Suspect]
     Indication: MULTIPLE SCLEROSIS
     Dosage: 300 MG EVERY MONTH INTRAVENOUS DRIP
     Route: 041
     Dates: start: 20120119

REACTIONS (1)
  - DRUG HYPERSENSITIVITY [None]
